FAERS Safety Report 13263266 (Version 1)
Quarter: 2017Q1

REPORT INFORMATION
  Report Type: Spontaneous
  Country: US (occurrence: US)
  Receive Date: 20170223
  Receipt Date: 20170223
  Transmission Date: 20170428
  Serious: Yes (Other)
  Sender: FDA-Public Use
  Company Number: US-B.I. PHARMACEUTICALS,INC./RIDGEFIELD-2017-BI-008745

PATIENT
  Sex: Female

DRUGS (1)
  1. PRADAXA [Suspect]
     Active Substance: DABIGATRAN ETEXILATE MESYLATE
     Indication: ATRIAL FIBRILLATION
     Dosage: 1 CAPSULE BID;  ? ADMINISTRATION CORRECT? YES
     Route: 048
     Dates: start: 2015

REACTIONS (7)
  - Blood calcium increased [Recovered/Resolved]
  - Rash [Unknown]
  - Fatigue [Not Recovered/Not Resolved]
  - Breast cancer female [Not Recovered/Not Resolved]
  - Blood parathyroid hormone increased [Recovered/Resolved]
  - Thyroid neoplasm [Recovered/Resolved]
  - Parathyroid tumour benign [Recovered/Resolved]

NARRATIVE: CASE EVENT DATE: 2015
